FAERS Safety Report 10398285 (Version 1)
Quarter: 2014Q3

REPORT INFORMATION
  Report Type: Spontaneous
  Country: US (occurrence: None)
  Receive Date: 20140818
  Receipt Date: 20140818
  Transmission Date: 20150326
  Serious: Yes (Other)
  Sender: FDA-Public Use
  Company Number: None

PATIENT
  Age: 52 Year
  Sex: Female

DRUGS (1)
  1. DEPAKOTE ER 500 MGS (GENERIC) [Suspect]
     Active Substance: DIVALPROEX SODIUM
     Indication: BIPOLAR DISORDER
     Dates: start: 20140101

REACTIONS (4)
  - Agitation [None]
  - Product substitution issue [None]
  - Affective disorder [None]
  - Poor quality sleep [None]

NARRATIVE: CASE EVENT DATE: 20140101
